FAERS Safety Report 13983828 (Version 1)
Quarter: 2017Q3

REPORT INFORMATION
  Report Type: Spontaneous
  Country: US (occurrence: US)
  Receive Date: 20170918
  Receipt Date: 20170918
  Transmission Date: 20171128
  Serious: Yes (Hospitalization)
  Sender: FDA-Public Use
  Company Number: US-GILEAD-2017-0293023

PATIENT
  Age: 26 Year
  Sex: Female

DRUGS (8)
  1. LACTULOSE. [Concomitant]
     Active Substance: LACTULOSE
  2. NITRO-BID [Concomitant]
     Active Substance: NITROGLYCERIN
  3. OMEPRAZOLE. [Concomitant]
     Active Substance: OMEPRAZOLE
  4. EPCLUSA [Suspect]
     Active Substance: SOFOSBUVIR\VELPATASVIR
     Indication: HEPATITIS C
     Dosage: 1 DF, QD
     Route: 048
     Dates: start: 20170630
  5. VIVITROL [Suspect]
     Active Substance: NALTREXONE
     Indication: DRUG USE DISORDER
     Dosage: 380 MG, Q1MONTH
     Route: 058
     Dates: start: 20170321
  6. CARBAMAZEPINE. [Concomitant]
     Active Substance: CARBAMAZEPINE
  7. AMITIZA [Concomitant]
     Active Substance: LUBIPROSTONE
  8. FLUPHENAZINE [Concomitant]
     Active Substance: FLUPHENAZINE

REACTIONS (2)
  - Incorrect route of drug administration [Unknown]
  - Therapy change [Unknown]

NARRATIVE: CASE EVENT DATE: 201706
